FAERS Safety Report 15664309 (Version 1)
Quarter: 2018Q4

REPORT INFORMATION
  Report Type: Spontaneous
  Country: US (occurrence: US)
  Receive Date: 20181116
  Receipt Date: 20181116
  Transmission Date: 20190205
  Serious: No
  Sender: FDA-Public Use
  Company Number: None

PATIENT
  Age: 34 Year
  Sex: Female

DRUGS (1)
  1. GANIRELIX 250MCG ORGANON USA INC [Suspect]
     Active Substance: GANIRELIX
     Indication: INFERTILITY
     Dosage: 250/0.5 MCG/ML, UNDER THE SKIN
     Route: 065
     Dates: start: 20181107, end: 20181109

REACTIONS (1)
  - Device defective [None]

NARRATIVE: CASE EVENT DATE: 20181107
